FAERS Safety Report 13441199 (Version 2)
Quarter: 2017Q2

REPORT INFORMATION
  Report Type: Spontaneous
  Country: US (occurrence: US)
  Receive Date: 20170413
  Receipt Date: 20170420
  Transmission Date: 20170830
  Serious: No
  Sender: FDA-Public Use
  Company Number: US-TEVA-750951ACC

PATIENT
  Age: 25 Year
  Sex: Female
  Weight: 59.02 kg

DRUGS (1)
  1. AFTERA [Suspect]
     Active Substance: LEVONORGESTREL
     Indication: POST COITAL CONTRACEPTION
     Dates: start: 20170228, end: 20170228

REACTIONS (2)
  - Menstruation delayed [Unknown]
  - Breast pain [Not Recovered/Not Resolved]

NARRATIVE: CASE EVENT DATE: 20170307
